FAERS Safety Report 21271869 (Version 1)
Quarter: 2022Q3

REPORT INFORMATION
  Report Type: Spontaneous
  Country: US (occurrence: US)
  Receive Date: 20220830
  Receipt Date: 20220830
  Transmission Date: 20221027
  Serious: Yes (Other)
  Sender: FDA-Public Use
  Company Number: US-ABBVIE-22K-163-4522099-00

PATIENT

DRUGS (1)
  1. SYNTHROID [Suspect]
     Active Substance: LEVOTHYROXINE SODIUM
     Indication: Product used for unknown indication
     Route: 048

REACTIONS (11)
  - Brain neoplasm [Unknown]
  - Lung neoplasm [Unknown]
  - Toothache [Unknown]
  - Ear pain [Unknown]
  - Nodule [Unknown]
  - Pain in jaw [Unknown]
  - Thyroid mass [Unknown]
  - Hypothyroidism [Unknown]
  - Arthralgia [Unknown]
  - Hepatic enzyme increased [Unknown]
  - Diarrhoea [Unknown]
